FAERS Safety Report 4319620-8 (Version None)
Quarter: 2004Q1

REPORT INFORMATION
  Report Type: 
  Country: None (occurrence: None)
  Receive Date: 20040316
  Receipt Date: 20040308
  Transmission Date: 20041129
  Serious: Yes (Hospitalization, Other)
  Sender: FDA-Public Use
  Company Number: USA040156450

PATIENT
  Age: 8 Year
  Sex: Male
  Weight: 17 kg

DRUGS (10)
  1. STRATTERA [Suspect]
     Indication: ATTENTION DEFICIT/HYPERACTIVITY DISORDER
     Dosage: 80 MG DAY
     Dates: start: 20040219
  2. STRATTERA [Suspect]
     Indication: BIPOLAR DISORDER
     Dosage: 80 MG DAY
     Dates: start: 20040219
  3. ZYPREXA [Suspect]
     Indication: AGGRESSION
     Dosage: 1.2 MG/IN THE EVENING
     Dates: start: 20040102, end: 20040110
  4. ZYPREXA [Suspect]
     Indication: BIPOLAR DISORDER
     Dosage: 1.2 MG/IN THE EVENING
     Dates: start: 20040102, end: 20040110
  5. ZYPREXA [Suspect]
     Indication: MOOD SWINGS
     Dosage: 1.2 MG/IN THE EVENING
     Dates: start: 20040102, end: 20040110
  6. ZOLOFT [Concomitant]
  7. LEXAPRO [Concomitant]
  8. ABILIFY [Concomitant]
  9. DILANTIN [Concomitant]
  10. CLONIDINE [Concomitant]

REACTIONS (18)
  - ABDOMINAL PAIN UPPER [None]
  - AGGRESSION [None]
  - BLOOD PRESSURE DECREASED [None]
  - CEREBRAL PALSY [None]
  - CONFUSIONAL STATE [None]
  - DYSPEPSIA [None]
  - DYSPNOEA [None]
  - FEELING ABNORMAL [None]
  - FEELING COLD [None]
  - GRAND MAL CONVULSION [None]
  - INFLUENZA [None]
  - LOSS OF CONSCIOUSNESS [None]
  - PRESCRIBED OVERDOSE [None]
  - PSYCHOMOTOR HYPERACTIVITY [None]
  - PYREXIA [None]
  - SPEECH DISORDER [None]
  - TACHYCARDIA [None]
  - TREMOR [None]
